FAERS Safety Report 6590510-3 (Version None)
Quarter: 2010Q1

REPORT INFORMATION
  Report Type: 
  Country: None (occurrence: None)
  Receive Date: 20100219
  Receipt Date: 20100210
  Transmission Date: 20100710
  Serious: Yes (Hospitalization, Other)
  Sender: FDA-Public Use
  Company Number: US-RB-018864-09

PATIENT
  Age: 37 Year
  Sex: Male

DRUGS (2)
  1. SUBOXONE [Suspect]
     Route: 060
     Dates: start: 20080101
  2. BENZODIAZEPINE [Suspect]
     Indication: DRUG USE FOR UNKNOWN INDICATION
     Dosage: UNKNOWN DOSING INFORMATION
     Route: 065

REACTIONS (16)
  - APATHY [None]
  - DEAFNESS [None]
  - DEHYDRATION [None]
  - DRUG DEPENDENCE [None]
  - DRUG WITHDRAWAL SYNDROME [None]
  - FATIGUE [None]
  - HEADACHE [None]
  - KIDNEY INFECTION [None]
  - MUSCLE STRAIN [None]
  - MYALGIA [None]
  - OVERDOSE [None]
  - RENAL FAILURE [None]
  - RENAL FAILURE ACUTE [None]
  - TINNITUS [None]
  - TOOTHACHE [None]
  - VOMITING [None]
